FAERS Safety Report 25417807 (Version 1)
Quarter: 2025Q2

REPORT INFORMATION
  Report Type: Spontaneous
  Country: US (occurrence: US)
  Receive Date: 20250610
  Receipt Date: 20250610
  Transmission Date: 20250717
  Serious: Yes (Other)
  Sender: REGENERON
  Company Number: US-REGENERON PHARMACEUTICALS, INC.-2025-092094

PATIENT
  Sex: Male

DRUGS (2)
  1. EYLEA [Suspect]
     Active Substance: AFLIBERCEPT
     Indication: Eye haemorrhage
     Route: 031
  2. EYLEA [Suspect]
     Active Substance: AFLIBERCEPT
     Route: 031

REACTIONS (6)
  - Stent placement [Unknown]
  - Injury [Unknown]
  - Visual impairment [Unknown]
  - Gait disturbance [Unknown]
  - Product dose omission issue [Unknown]
  - Off label use [Unknown]

NARRATIVE: CASE EVENT DATE: 20250501
